FAERS Safety Report 18482151 (Version 5)
Quarter: 2022Q2

REPORT INFORMATION
  Report Type: Report from Study
  Country: IE (occurrence: IE)
  Receive Date: 20201109
  Receipt Date: 20220527
  Transmission Date: 20220721
  Serious: Yes (Death, Hospitalization, Other)
  Sender: FDA-Public Use
  Company Number: IE-TAKEDA-2020TUS046830

PATIENT
  Age: 58 Year
  Sex: Male

DRUGS (18)
  1. HUMAN IMMUNOGLOBULIN G\HYALURONIDASE RECOMBINANT HUMAN [Suspect]
     Active Substance: HUMAN IMMUNOGLOBULIN G\HYALURONIDASE RECOMBINANT HUMAN
     Indication: Product used for unknown indication
     Dosage: 55 GRAM, Q2WEEKS
     Route: 058
     Dates: start: 20190213
  2. HUMAN IMMUNOGLOBULIN G\HYALURONIDASE RECOMBINANT HUMAN [Suspect]
     Active Substance: HUMAN IMMUNOGLOBULIN G\HYALURONIDASE RECOMBINANT HUMAN
     Dosage: 55 GRAM, Q3WEEKS
     Route: 058
     Dates: start: 20190213
  3. HUMAN IMMUNOGLOBULIN G\HYALURONIDASE RECOMBINANT HUMAN [Suspect]
     Active Substance: HUMAN IMMUNOGLOBULIN G\HYALURONIDASE RECOMBINANT HUMAN
     Dosage: 55 GRAM, Q2WEEKS
     Route: 058
     Dates: start: 20201222
  4. HUMAN IMMUNOGLOBULIN G\HYALURONIDASE RECOMBINANT HUMAN [Suspect]
     Active Substance: HUMAN IMMUNOGLOBULIN G\HYALURONIDASE RECOMBINANT HUMAN
     Dosage: 55 GRAM, Q3WEEKS
     Route: 058
     Dates: start: 20210315
  5. PROGRAF [Concomitant]
     Active Substance: TACROLIMUS
     Dosage: 1 MILLIGRAM, BID
     Route: 048
  6. PREDNISOLONE [Concomitant]
     Active Substance: PREDNISOLONE
     Dosage: 15 MILLIGRAM, QD
     Route: 048
  7. BISOPROLOL [Concomitant]
     Active Substance: BISOPROLOL
     Dosage: 2.5 MILLIGRAM, QD
     Route: 048
  8. PENTAMIDINE [Concomitant]
     Active Substance: PENTAMIDINE
     Dosage: 300 MILLIGRAM, MONTHLY
     Route: 065
  9. VORICONAZOLE [Concomitant]
     Active Substance: VORICONAZOLE
     Dosage: 200 MILLIGRAM, BID
     Route: 048
  10. AZITHROMYCIN [Concomitant]
     Active Substance: AZITHROMYCIN
     Dosage: 250 MILLIGRAM, 3/WEEK
     Route: 048
  11. PANTOPRAZOLE [Concomitant]
     Active Substance: PANTOPRAZOLE
     Dosage: 40 MILLIGRAM, QD
     Route: 048
  12. ACETAMINOPHEN [Concomitant]
     Active Substance: ACETAMINOPHEN
     Dosage: 1 GRAM, PRN
     Route: 048
  13. ALENDRONATE [Concomitant]
     Active Substance: ALENDRONATE SODIUM
     Dosage: 70 MILLIGRAM, 1/WEEK
     Route: 048
  14. IRON [Concomitant]
     Active Substance: IRON
     Dosage: 305 MILLIGRAM, QD
     Route: 048
  15. LEUCOVORIN [Concomitant]
     Active Substance: LEUCOVORIN
     Dosage: 15 MILLIGRAM, QD
     Route: 048
  16. MAGNESIUM [Concomitant]
     Active Substance: MAGNESIUM
     Dosage: 500 MILLIGRAM, TID
     Route: 048
  17. ALPRAZOLAM [Concomitant]
     Active Substance: ALPRAZOLAM
     Dosage: 0.25 MILLIGRAM, PRN
     Route: 048
  18. HUMAN IMMUNOGLOBULIN G [Concomitant]
     Active Substance: HUMAN IMMUNOGLOBULIN G
     Dosage: 60 GRAM
     Route: 058

REACTIONS (2)
  - Death [Fatal]
  - Hospitalisation [Not Recovered/Not Resolved]

NARRATIVE: CASE EVENT DATE: 20201001
